FAERS Safety Report 19620327 (Version 1)
Quarter: 2021Q3

REPORT INFORMATION
  Report Type: Spontaneous
  Country: CA (occurrence: CA)
  Receive Date: 20210728
  Receipt Date: 20210728
  Transmission Date: 20211014
  Serious: Yes (Other)
  Sender: FDA-Public Use
  Company Number: CA-JNJFOC-20210749696

PATIENT
  Age: 75 Year
  Sex: Female
  Weight: 66 kg

DRUGS (1)
  1. REMICADE [Suspect]
     Active Substance: INFLIXIMAB
     Indication: RHEUMATOID ARTHRITIS
     Route: 042

REACTIONS (11)
  - Oedema peripheral [Unknown]
  - Intentional product use issue [Unknown]
  - Oxygen saturation decreased [Unknown]
  - Sneezing [Unknown]
  - Skin plaque [Unknown]
  - Heart rate decreased [Unknown]
  - Poor venous access [Unknown]
  - Off label use [Unknown]
  - Movement disorder [Unknown]
  - Blood pressure fluctuation [Unknown]
  - Cellulitis [Unknown]
